FAERS Safety Report 8184765-1 (Version None)
Quarter: 2012Q1

REPORT INFORMATION
  Report Type: 
  Country: None (occurrence: None)
  Receive Date: 20120305
  Receipt Date: 20120305
  Transmission Date: 20120608
  Serious: Yes (Other)
  Sender: FDA-Public Use
  Company Number: None

PATIENT
  Age: 62 Year
  Sex: Male
  Weight: 83.914 kg

DRUGS (1)
  1. ASMANEX TWISTHALER [Suspect]
     Indication: ASTHMA
     Dosage: 220 MCG PER ACTUATION
     Route: 055
     Dates: start: 19990104, end: 20120304

REACTIONS (3)
  - OSTEONECROSIS [None]
  - CHONDROPATHY [None]
  - OSTEOARTHRITIS [None]
